FAERS Safety Report 8927404 (Version 7)
Quarter: 2013Q1

REPORT INFORMATION
  Report Type: Report from Study
  Country: US (occurrence: US)
  Receive Date: 20121127
  Receipt Date: 20130326
  Transmission Date: 20140127
  Serious: Yes (Life-Threatening, Other)
  Sender: FDA-Public Use
  Company Number: US-MERCK-1211USA008820

PATIENT
  Age: 48 Year
  Sex: Male
  Weight: 87.53 kg

DRUGS (4)
  1. VICTRELIS [Suspect]
     Indication: HEPATITIS C
     Dosage: 800 MG, TID
     Route: 048
     Dates: start: 20121019
  2. PEG-INTRON [Suspect]
     Indication: HEPATITIS C
     Dosage: 96 MICROGRAM, QW
     Route: 058
     Dates: start: 20120924, end: 20130301
  3. REBETOL [Suspect]
     Dosage: 200 MG, BID
     Route: 048
     Dates: start: 20120924
  4. ATRIPLA [Concomitant]
     Indication: HIV INFECTION
     Dosage: HS- AT BEDTIME
     Route: 048
     Dates: start: 201109, end: 20121115

REACTIONS (3)
  - Neutropenia [Recovered/Resolved]
  - Neutropenia [Recovered/Resolved with Sequelae]
  - Hypertriglyceridaemia [Recovered/Resolved]
